FAERS Safety Report 18319064 (Version 1)
Quarter: 2020Q3

REPORT INFORMATION
  Report Type: Spontaneous
  Country: SE (occurrence: SE)
  Receive Date: 20200928
  Receipt Date: 20200928
  Transmission Date: 20201103
  Serious: Yes (Hospitalization)
  Sender: FDA-Public Use
  Company Number: SE-UNICHEM PHARMACEUTICALS (USA) INC-UCM202009-001080

PATIENT
  Age: 70 Year
  Sex: Female

DRUGS (5)
  1. AMLODIPINE [Suspect]
     Active Substance: AMLODIPINE BESYLATE
     Indication: OVERDOSE
     Dosage: UNKNOWN
  2. PROPIOMAZINE [Suspect]
     Active Substance: PROPIOMAZINE
     Indication: OVERDOSE
     Dosage: UNKNOWN
  3. CITALOPRAM [Suspect]
     Active Substance: CITALOPRAM HYDROBROMIDE
     Indication: OVERDOSE
     Dosage: UNKNOWN
  4. CANDESARTAN. [Suspect]
     Active Substance: CANDESARTAN
     Indication: OVERDOSE
     Dosage: UNKNOWN
  5. OXAZEPAM. [Suspect]
     Active Substance: OXAZEPAM
     Indication: OVERDOSE
     Dosage: UNKNOWN

REACTIONS (4)
  - Toxicity to various agents [Recovered/Resolved]
  - Shock [Recovered/Resolved]
  - Hypotension [Recovered/Resolved]
  - Non-cardiogenic pulmonary oedema [Recovered/Resolved]
